FAERS Safety Report 4390333-X (Version None)
Quarter: 2004Q2

REPORT INFORMATION
  Report Type: 
  Country: None (occurrence: None)
  Receive Date: 20040630
  Receipt Date: 20040624
  Transmission Date: 20050107
  Serious: Yes (Hospitalization)
  Sender: FDA-Public Use
  Company Number: THQ2002A01248

PATIENT
  Age: 11 Year
  Sex: Female

DRUGS (1)
  1. LEUPROLIDE ACETATE [Suspect]
     Indication: PRECOCIOUS PUBERTY
     Dosage: 3.75 MG (3.75 MG, 1 IN 1 M)
     Dates: start: 19970401, end: 20010906

REACTIONS (1)
  - SLIPPED FEMORAL EPIPHYSIS [None]
